FAERS Safety Report 17423881 (Version 1)
Quarter: 2020Q1

REPORT INFORMATION
  Report Type: Spontaneous
  Country: HR (occurrence: HR)
  Receive Date: 20200217
  Receipt Date: 20200217
  Transmission Date: 20200409
  Serious: Yes (Hospitalization)
  Sender: FDA-Public Use
  Company Number: HR-US-PROVELL PHARMACEUTICALS LLC-E2B_90074826

PATIENT
  Age: 46 Year
  Sex: Female
  Weight: 110 kg

DRUGS (1)
  1. EUTHYROX NF [Suspect]
     Active Substance: LEVOTHYROXINE SODIUM
     Indication: THYROID DISORDER
     Dosage: 50/75 UG, ONCE A DAY ON AN EMPTY STOMACH
     Route: 048

REACTIONS (5)
  - Choking sensation [Unknown]
  - Cholecystitis [Recovering/Resolving]
  - Biliary colic [Recovering/Resolving]
  - Heart rate increased [Unknown]
  - Palpitations [Unknown]

NARRATIVE: CASE EVENT DATE: 20200109
